FAERS Safety Report 13724456 (Version 2)
Quarter: 2017Q3

REPORT INFORMATION
  Report Type: Spontaneous
  Country: US (occurrence: US)
  Receive Date: 20170706
  Receipt Date: 20170809
  Transmission Date: 20171127
  Serious: No
  Sender: FDA-Public Use
  Company Number: GXBR2017US002046

PATIENT
  Age: 56 Year
  Sex: Male
  Weight: 87.75 kg

DRUGS (1)
  1. TACROLIMUS. [Suspect]
     Active Substance: TACROLIMUS
     Indication: TRANSPLANT REJECTION
     Dosage: 5 DF, QD (2 MG IN THE MORNING AND 3 MG IN THE EVENING)
     Route: 048
     Dates: start: 201410

REACTIONS (4)
  - Product physical issue [Unknown]
  - Drug level decreased [Unknown]
  - Alanine aminotransferase increased [Unknown]
  - Aspartate aminotransferase increased [Unknown]

NARRATIVE: CASE EVENT DATE: 20170614
